FAERS Safety Report 8922944 (Version 1)
Quarter: 2012Q4

REPORT INFORMATION
  Report Type: Spontaneous
  Country: US (occurrence: None)
  Receive Date: 20121115
  Receipt Date: 20121115
  Transmission Date: 20130627
  Serious: No
  Sender: FDA-Public Use
  Company Number: US-009824

PATIENT
  Age: 55 Year
  Sex: Female
  Weight: 62.6 kg

DRUGS (8)
  1. SODIUM PICOSULFATE [Suspect]
     Indication: COLONOSCOPY
     Route: 048
     Dates: start: 20121011, end: 20121011
  2. PRILOSEC /00661201/ [Concomitant]
  3. LEVBID [Concomitant]
  4. ESTROGEN NOS [Concomitant]
  5. LOMOTIL [Concomitant]
  6. DOXEPIN [Concomitant]
  7. XANAX [Concomitant]
  8. GABAPENTIN [Concomitant]

REACTIONS (3)
  - Drug ineffective [None]
  - Vomiting [None]
  - Nervousness [None]
